FAERS Safety Report 9845057 (Version 1)
Quarter: 2014Q1

REPORT INFORMATION
  Report Type: Spontaneous
  Country: None (occurrence: None)
  Receive Date: 20140123
  Receipt Date: 20140123
  Transmission Date: 20141002
  Serious: No
  Sender: FDA-Public Use
  Company Number: None

PATIENT
  Age: 38 Year
  Sex: Male
  Weight: 80 kg

DRUGS (1)
  1. NAPROXEN [Suspect]
     Indication: EPICONDYLITIS
     Dates: start: 20120110, end: 20120117

REACTIONS (1)
  - Dyspnoea [None]
